FAERS Safety Report 9981599 (Version 1)
Quarter: 2014Q1

REPORT INFORMATION
  Report Type: Spontaneous
  Country: US (occurrence: US)
  Receive Date: 20140307
  Receipt Date: 20140307
  Transmission Date: 20141002
  Serious: No
  Sender: FDA-Public Use
  Company Number: US-ABBVIE-13P-163-1180022-00

PATIENT
  Age: 49 Year
  Sex: Female
  Weight: 80.36 kg

DRUGS (6)
  1. HUMIRA [Suspect]
     Indication: CROHN^S DISEASE
     Route: 058
     Dates: start: 201303, end: 201303
  2. HUMIRA [Suspect]
     Route: 058
     Dates: start: 201303, end: 201303
  3. HUMIRA [Suspect]
     Route: 058
     Dates: start: 201304, end: 20130926
  4. PENTASA [Concomitant]
     Indication: CROHN^S DISEASE
  5. IRON [Concomitant]
     Indication: ANAEMIA
  6. PANTOPRAZOLE [Concomitant]
     Indication: PRODUCT USED FOR UNKNOWN INDICATION

REACTIONS (1)
  - Hepatic enzyme increased [Recovered/Resolved]
